FAERS Safety Report 19357279 (Version 12)
Quarter: 2025Q1

REPORT INFORMATION
  Report Type: Report from Study
  Country: JP (occurrence: JP)
  Receive Date: 20210602
  Receipt Date: 20250107
  Transmission Date: 20250408
  Serious: Yes (Other)
  Sender: CHIESI
  Company Number: JP-AMRYT PHARMACEUTICALS DAC-AEGR005177

PATIENT
  Age: 41 Year
  Sex: Male
  Weight: 83 kg

DRUGS (13)
  1. LOMITAPIDE [Suspect]
     Active Substance: LOMITAPIDE
     Indication: Type IIa hyperlipidaemia
     Dosage: 5 MILLIGRAM, QD
     Route: 048
     Dates: start: 20201029
  2. LOMITAPIDE [Suspect]
     Active Substance: LOMITAPIDE
     Dosage: 10 MILLIGRAM QD
     Route: 048
     Dates: start: 20201126
  3. LOMITAPIDE [Suspect]
     Active Substance: LOMITAPIDE
     Dosage: 15 MILLIGRAM, QD
     Route: 048
     Dates: start: 20210107
  4. LOMITAPIDE [Suspect]
     Active Substance: LOMITAPIDE
     Dosage: 20 MILLIGRAM, QD
     Route: 048
     Dates: start: 20210218, end: 20210512
  5. LOMITAPIDE [Suspect]
     Active Substance: LOMITAPIDE
     Dosage: 25 MILLIGRAM, QD
     Route: 048
     Dates: start: 20210513, end: 20210520
  6. LOMITAPIDE [Suspect]
     Active Substance: LOMITAPIDE
     Dosage: 25 MILLIGRAM, QD
     Route: 048
     Dates: start: 20210701
  7. ATORVASTATIN CALCIUM [Concomitant]
     Active Substance: ATORVASTATIN CALCIUM
     Indication: Type IIa hyperlipidaemia
     Dosage: 40 MILLIGRAM, QD
     Route: 048
  8. COLESTILAN CHLORIDE [Concomitant]
     Active Substance: COLESTILAN CHLORIDE
     Indication: Type IIa hyperlipidaemia
     Dosage: 40 MILLIGRAM, QD
     Route: 048
  9. COLESTILAN CHLORIDE [Concomitant]
     Active Substance: COLESTILAN CHLORIDE
     Dosage: 3000 MILLIGRAM, QD
  10. PROBUCOL [Concomitant]
     Active Substance: PROBUCOL
     Indication: Type IIa hyperlipidaemia
     Dosage: 1000 MILLIGRAM, QD
     Route: 048
  11. EZETIMIBE [Concomitant]
     Active Substance: EZETIMIBE
     Indication: Type IIa hyperlipidaemia
     Dosage: 10 MILLIGRAM, QD
     Route: 048
  12. INCLISIRAN SODIUM [Concomitant]
     Active Substance: INCLISIRAN SODIUM
     Indication: Type IIa hyperlipidaemia
  13. EVINACUMAB [Concomitant]
     Active Substance: EVINACUMAB
     Indication: Type IIa hyperlipidaemia
     Dates: start: 202404

REACTIONS (3)
  - Neutrophil count decreased [Recovered/Resolved]
  - Faeces soft [Not Recovered/Not Resolved]
  - Diarrhoea [Unknown]

NARRATIVE: CASE EVENT DATE: 20210121
